FAERS Safety Report 9726309 (Version 1)
Quarter: 2013Q4

REPORT INFORMATION
  Report Type: Spontaneous
  Country: US (occurrence: None)
  Receive Date: 20131202
  Receipt Date: 20131202
  Transmission Date: 20140711
  Serious: Yes (Other)
  Sender: FDA-Public Use
  Company Number: None

PATIENT
  Age: 79 Year
  Sex: Male

DRUGS (4)
  1. FLOMAX [Suspect]
     Indication: URINE FLOW DECREASED
  2. NIFEDIPINE [Concomitant]
  3. FLUDROCORT [Concomitant]
  4. MIDODRINE [Concomitant]

REACTIONS (2)
  - Nasal congestion [None]
  - Insomnia [None]
